FAERS Safety Report 24307785 (Version 1)
Quarter: 2024Q3

REPORT INFORMATION
  Report Type: Spontaneous
  Country: US (occurrence: None)
  Receive Date: 20240910
  Receipt Date: 20240910
  Transmission Date: 20241017
  Serious: Yes (Life-Threatening, Hospitalization, Disabling, Other)
  Sender: Public
  Company Number: None

PATIENT
  Age: 61 Year
  Sex: Female
  Weight: 72 kg

DRUGS (13)
  1. OZEMPIC [Suspect]
     Active Substance: SEMAGLUTIDE
     Indication: Diabetes mellitus
     Dosage: OTHER FREQUENCY : WEEKLY;?
     Route: 058
  2. OZEMPIC [Suspect]
     Active Substance: SEMAGLUTIDE
     Indication: Glycosylated haemoglobin increased
  3. LEVOTHYROXINE [Concomitant]
     Active Substance: LEVOTHYROXINE\LEVOTHYROXINE SODIUM
  4. INSULIN NOS [Concomitant]
     Active Substance: INSULIN NOS
  5. REMERON [Concomitant]
     Active Substance: MIRTAZAPINE
  6. PROTONIX [Concomitant]
     Active Substance: PANTOPRAZOLE SODIUM
  7. ZINC OXIDE [Concomitant]
     Active Substance: ZINC OXIDE
  8. NYSTATIN [Concomitant]
     Active Substance: NYSTATIN
  9. COLACE [Concomitant]
     Active Substance: DOCUSATE SODIUM
  10. HEPARIN [Concomitant]
     Active Substance: HEPARIN SODIUM
  11. LIPITOR [Concomitant]
     Active Substance: ATORVASTATIN CALCIUM
  12. LEXAPRO [Concomitant]
     Active Substance: ESCITALOPRAM OXALATE
  13. TYLENOL [Concomitant]
     Active Substance: ACETAMINOPHEN

REACTIONS (20)
  - Septic shock [None]
  - Intestinal obstruction [None]
  - Intestinal ischaemia [None]
  - Dizziness [None]
  - Loss of consciousness [None]
  - Acute kidney injury [None]
  - Dialysis [None]
  - Colostomy [None]
  - Inflammation of wound [None]
  - Wound dehiscence [None]
  - Gastrointestinal necrosis [None]
  - Orthostatic hypotension [None]
  - Anaemia [None]
  - Deep vein thrombosis [None]
  - Pulmonary oedema [None]
  - Gastrointestinal haemorrhage [None]
  - Hypophagia [None]
  - Malnutrition [None]
  - Vomiting [None]
  - Pancreatic disorder [None]

NARRATIVE: CASE EVENT DATE: 20240726
